FAERS Safety Report 8951435 (Version 1)
Quarter: 2012Q4

REPORT INFORMATION
  Report Type: Report from Study
  Country: US (occurrence: US)
  Receive Date: 20121207
  Receipt Date: 20121207
  Transmission Date: 20130627
  Serious: Yes (Hospitalization, Other)
  Sender: FDA-Public Use
  Company Number: US-ABBOTT-12P-163-1014699-00

PATIENT
  Age: 24 None
  Sex: Female

DRUGS (5)
  1. HUMIRA [Suspect]
     Indication: PSORIASIS
     Dates: start: 201105, end: 201201
  2. HUMIRA [Suspect]
     Dates: start: 201201
  3. PROZAC [Concomitant]
     Indication: DEPRESSION
  4. AMBIEN [Concomitant]
     Indication: INSOMNIA
  5. ABILIFY [Concomitant]
     Indication: AFFECTIVE DISORDER

REACTIONS (5)
  - Bulimia nervosa [Not Recovered/Not Resolved]
  - Decreased appetite [Not Recovered/Not Resolved]
  - Mood swings [Recovering/Resolving]
  - Device malfunction [Unknown]
  - Drug dose omission [Unknown]
